FAERS Safety Report 15341933 (Version 1)
Quarter: 2018Q3

REPORT INFORMATION
  Report Type: Spontaneous
  Country: US (occurrence: US)
  Receive Date: 20180828
  Receipt Date: 20180828
  Transmission Date: 20181010
  Serious: Yes (Disabling, Other)
  Sender: FDA-Public Use
  Company Number: None

PATIENT
  Age: 50 Year
  Sex: Female
  Weight: 64.35 kg

DRUGS (10)
  1. ALPRAZOLAM. [Concomitant]
     Active Substance: ALPRAZOLAM
  2. LISINOPRIL. [Concomitant]
     Active Substance: LISINOPRIL
  3. EYE DROPS [Concomitant]
     Active Substance: UNSPECIFIED INGREDIENT
  4. ROBATUSSIN DM [Concomitant]
  5. BRO [Concomitant]
  6. BACLOFEN GENERIC FOR LIORESAL [Suspect]
     Active Substance: BACLOFEN
     Indication: MUSCLE SPASMS
     Dosage: ?          OTHER STRENGTH:10 MG;QUANTITY:90 TABLET(S);?
     Route: 048
     Dates: start: 20180201, end: 20180815
  7. MYRBETRIQ [Concomitant]
     Active Substance: MIRABEGRON
  8. BACK BRACE [Concomitant]
  9. MOTRIN [Concomitant]
     Active Substance: IBUPROFEN
  10. TYLENOL [Concomitant]
     Active Substance: ACETAMINOPHEN

REACTIONS (3)
  - Myalgia [None]
  - Muscle atrophy [None]
  - Peau d^orange [None]

NARRATIVE: CASE EVENT DATE: 19670908
